FAERS Safety Report 4700906-X (Version None)
Quarter: 2005Q2

REPORT INFORMATION
  Report Type: 
  Country: None (occurrence: None)
  Receive Date: 20050628
  Receipt Date: 20050427
  Transmission Date: 20051028
  Serious: Yes (Hospitalization)
  Sender: FDA-Public Use
  Company Number: JP-SP-2005-00811

PATIENT
  Age: 73 Year
  Sex: Female

DRUGS (2)
  1. IMMUCYST [Suspect]
     Indication: BLADDER CANCER RECURRENT
     Route: 043
     Dates: start: 20050307, end: 20050411
  2. IMMUCYST [Suspect]
     Route: 043
     Dates: start: 20050307, end: 20050411

REACTIONS (6)
  - HAEMORRHAGE [None]
  - HENOCH-SCHONLEIN PURPURA [None]
  - HEPATITIS C [None]
  - NECROSIS [None]
  - SKIN ULCER [None]
  - THROMBOCYTOPENIA [None]
